FAERS Safety Report 5400932-1 (Version None)
Quarter: 2007Q3

REPORT INFORMATION
  Report Type: 
  Country: None (occurrence: None)
  Receive Date: 20070730
  Receipt Date: 20070411
  Transmission Date: 20080115
  Serious: No
  Sender: FDA-Public Use
  Company Number: A0647233A

PATIENT
  Sex: Female

DRUGS (2)
  1. ZANTAC 150 [Suspect]
     Indication: ILL-DEFINED DISORDER
  2. ZYRTEC [Suspect]

REACTIONS (9)
  - ABDOMINAL PAIN [None]
  - ABDOMINAL PAIN UPPER [None]
  - ACCOMMODATION DISORDER [None]
  - CRYING [None]
  - DRUG DISPENSING ERROR [None]
  - DRY MOUTH [None]
  - INFANTILE SPITTING UP [None]
  - IRRITABILITY [None]
  - MYDRIASIS [None]
